FAERS Safety Report 8084295 (Version 2)
Quarter: 2013Q1

REPORT INFORMATION
  Report Type: Spontaneous
  Country: US (occurrence: US)
  Receive Date: 20110810
  Receipt Date: 20130215
  Transmission Date: 20140127
  Serious: Yes (Hospitalization)
  Sender: FDA-Public Use
  Company Number: US-GLAXOSMITHKLINE-A0903535A

PATIENT
  Age: 51 Year
  Sex: Male
  Weight: 100.5 kg

DRUGS (2)
  1. AVANDIA [Suspect]
     Indication: DIABETES MELLITUS
     Dosage: 2MG TWICE PER DAY
     Route: 048
     Dates: start: 200501, end: 20090728
  2. AVANDARYL [Suspect]
     Indication: DIABETES MELLITUS
     Route: 048
     Dates: start: 20080311, end: 20080606

REACTIONS (10)
  - Myocardial infarction [Not Recovered/Not Resolved]
  - Supraventricular tachycardia [Unknown]
  - Atrial fibrillation [Unknown]
  - Pleural effusion [Unknown]
  - Eye haemorrhage [Unknown]
  - Hepatic enzyme increased [Unknown]
  - Hepatic steatosis [Unknown]
  - Angiopathy [Unknown]
  - Coronary artery disease [Unknown]
  - Catheterisation cardiac [Unknown]
